FAERS Safety Report 6074367-5 (Version None)
Quarter: 2009Q1

REPORT INFORMATION
  Report Type: 
  Country: None (occurrence: None)
  Receive Date: 20090211
  Receipt Date: 20090130
  Transmission Date: 20090719
  Serious: Yes (Other)
  Sender: FDA-Public Use
  Company Number: DE-PFIZER INC-2009166066

PATIENT

DRUGS (1)
  1. NICOTINE [Suspect]
     Dosage: 10 MG, UNK

REACTIONS (1)
  - ASTHMA [None]
